FAERS Safety Report 23061351 (Version 1)
Quarter: 2023Q4

REPORT INFORMATION
  Report Type: Spontaneous
  Country: US (occurrence: US)
  Receive Date: 20231013
  Receipt Date: 20231013
  Transmission Date: 20240109
  Serious: No
  Sender: FDA-Public Use
  Company Number: ENDG23-01149

PATIENT
  Sex: Female

DRUGS (2)
  1. CHOLESTYRAMINE LIGHT [Suspect]
     Active Substance: CHOLESTYRAMINE
     Indication: Constipation
     Dosage: UNK UNKNOWN, UNKNOWN
     Route: 048
     Dates: start: 20230228, end: 20230228
  2. CHOLESTYRAMINE LIGHT [Suspect]
     Active Substance: CHOLESTYRAMINE
     Indication: Constipation
     Dosage: UNK UNKNOWN, UNKNOWN
     Route: 048
     Dates: start: 20230228, end: 20230228

REACTIONS (9)
  - Choking [Unknown]
  - Dyspnoea [Unknown]
  - Dysphonia [Not Recovered/Not Resolved]
  - Oropharyngeal pain [Not Recovered/Not Resolved]
  - Tooth discolouration [Unknown]
  - Product use complaint [Unknown]
  - Product dose omission issue [Unknown]
  - Product substitution issue [Unknown]
  - Off label use [Recovered/Resolved]

NARRATIVE: CASE EVENT DATE: 20230101
